FAERS Safety Report 5208921-7 (Version None)
Quarter: 2007Q1

REPORT INFORMATION
  Report Type: 
  Country: None (occurrence: None)
  Receive Date: 20070111
  Receipt Date: 20070111
  Transmission Date: 20070707
  Serious: Yes (Other)
  Sender: FDA-Public Use
  Company Number: None

PATIENT
  Age: 71 Year
  Sex: Male
  Weight: 62.1 kg

DRUGS (1)
  1. PACLITAXEL [Suspect]
     Indication: LUNG NEOPLASM MALIGNANT
     Dosage: 90MG, 90MG ONC, INTRAVEN
     Route: 042
     Dates: start: 20061003, end: 20061003

REACTIONS (3)
  - DYSPNOEA [None]
  - FLUSHING [None]
  - TACHYCARDIA [None]
